FAERS Safety Report 22217185 (Version 1)
Quarter: 2023Q2

REPORT INFORMATION
  Report Type: Spontaneous
  Country: US (occurrence: US)
  Receive Date: 20230417
  Receipt Date: 20230417
  Transmission Date: 20230722
  Serious: Yes (Other)
  Sender: FDA-Public Use
  Company Number: US-HALEON-USCH2023015575

PATIENT
  Age: 60 Year
  Sex: Male

DRUGS (1)
  1. CHAPSTICK MOISTURIZER ORIGINAL [Suspect]
     Active Substance: AVOBENZONE\OCTINOXATE\PETROLATUM
     Indication: Chapped lips
     Dosage: UNK

REACTIONS (4)
  - Lip dry [Recovering/Resolving]
  - Condition aggravated [Recovering/Resolving]
  - Oral discomfort [Recovering/Resolving]
  - Lip exfoliation [Recovering/Resolving]
